FAERS Safety Report 6417214-1 (Version None)
Quarter: 2009Q4

REPORT INFORMATION
  Report Type: 
  Country: None (occurrence: None)
  Receive Date: 20091027
  Receipt Date: 20091027
  Transmission Date: 20100525
  Serious: No
  Sender: FDA-Public Use
  Company Number: None

PATIENT
  Sex: Female
  Weight: 140 kg

DRUGS (2)
  1. LEVAQUIN [Suspect]
     Indication: EVIDENCE BASED TREATMENT
     Dosage: LEVAQUIN 750MG Q48H IV
     Route: 042
     Dates: start: 20090714
  2. LEVAQUIN [Suspect]
     Indication: WOUND INFECTION BACTERIAL
     Dosage: LEVAQUIN 750MG Q48H IV
     Route: 042
     Dates: start: 20090714

REACTIONS (9)
  - DIZZINESS [None]
  - DYSPNOEA [None]
  - FACE OEDEMA [None]
  - HEART RATE INCREASED [None]
  - HYPERHIDROSIS [None]
  - HYPOTENSION [None]
  - ORBITAL OEDEMA [None]
  - PRURITUS [None]
  - WHEEZING [None]
